FAERS Safety Report 21966411 (Version 3)
Quarter: 2023Q2

REPORT INFORMATION
  Report Type: Spontaneous
  Country: CN (occurrence: CN)
  Receive Date: 20230208
  Receipt Date: 20230417
  Transmission Date: 20230722
  Serious: Yes (Hospitalization, Other)
  Sender: FDA-Public Use
  Company Number: CN-002147023-NVSC2023CN015104

PATIENT
  Age: 58 Year
  Sex: Female
  Weight: 52 kg

DRUGS (2)
  1. CAPMATINIB [Suspect]
     Active Substance: CAPMATINIB
     Indication: Lung neoplasm malignant
     Dosage: 600 MG, QD (400MG IN THE MORNING AND 200MG IN THE EVENING-600 MG/DAY)
     Route: 048
     Dates: start: 20221102, end: 20221121
  2. CAPMATINIB [Suspect]
     Active Substance: CAPMATINIB
     Dosage: 600 MG, QD (400MG IN THE MORNING AND 200MG IN THE EVENING-600 MG/DAY)
     Route: 048
     Dates: start: 20221125

REACTIONS (5)
  - Pelvic pain [Recovered/Resolved]
  - Abdominal pain upper [Recovered/Resolved]
  - Myelosuppression [Recovered/Resolved]
  - White blood cell count decreased [Recovered/Resolved]
  - Neutrophil count decreased [Recovered/Resolved]

NARRATIVE: CASE EVENT DATE: 20221121
